FAERS Safety Report 26064855 (Version 2)
Quarter: 2025Q4

REPORT INFORMATION
  Report Type: Report from Study
  Country: CO (occurrence: CO)
  Receive Date: 20251119
  Receipt Date: 20251121
  Transmission Date: 20260117
  Serious: Yes (Hospitalization, Disabling, Other)
  Sender: NOVARTIS
  Company Number: CO-002147023-NVSC2025CO157595

PATIENT
  Age: 64 Year
  Sex: Female
  Weight: 47 kg

DRUGS (14)
  1. KISQALI [Suspect]
     Active Substance: RIBOCICLIB SUCCINATE
     Indication: Breast cancer metastatic
     Dosage: 400 MG, QD
     Route: 048
     Dates: start: 20230418
  2. KISQALI [Suspect]
     Active Substance: RIBOCICLIB SUCCINATE
     Indication: Hormone receptor positive HER2 negative breast cancer
     Dosage: 3 DOSAGE FORM, QD (EVERY 24 HOURS FOR 21 DAYS)
     Route: 048
     Dates: start: 202304
  3. KISQALI [Suspect]
     Active Substance: RIBOCICLIB SUCCINATE
     Dosage: 2 DOSAGE FORM, QD (DAILY / DAYS 1 TO 21)
     Route: 048
     Dates: start: 202404
  4. KISQALI [Suspect]
     Active Substance: RIBOCICLIB SUCCINATE
     Dosage: 3 DOSAGE FORM, QD (EVERY 24 HOURS DAY 1 TO 21 DAYS), 63 TABLETS
     Route: 048
     Dates: start: 20251001
  5. KISQALI [Suspect]
     Active Substance: RIBOCICLIB SUCCINATE
     Dosage: 400 MG, QD
     Route: 065
  6. FEMARA [Suspect]
     Active Substance: LETROZOLE
     Indication: Breast cancer metastatic
     Dosage: 2.5 MG, QD
     Route: 048
     Dates: start: 20230418
  7. FEMARA [Suspect]
     Active Substance: LETROZOLE
     Indication: Hormone receptor positive HER2 negative breast cancer
     Dosage: 1 DOSAGE FORM, QD
     Route: 048
     Dates: start: 202304
  8. FEMARA [Suspect]
     Active Substance: LETROZOLE
     Dosage: 1 DOSAGE FORM, QD (1X 2.5 MILLIGRAMS, ORALLY, EVERY 24  HOURS, FOR 60 DAYS, 60 TABLETS)
     Route: 048
     Dates: start: 20251001
  9. FEMARA [Suspect]
     Active Substance: LETROZOLE
     Dosage: 2.5 MG, QD
     Route: 065
  10. ZOLEDRONIC ACID [Suspect]
     Active Substance: ZOLEDRONIC ACID
     Indication: Breast cancer metastatic
     Dosage: 4 MG, OTHER (QUARTERLY)
     Route: 042
     Dates: start: 202304
  11. ZOLEDRONIC ACID [Suspect]
     Active Substance: ZOLEDRONIC ACID
     Indication: Hormone receptor positive HER2 negative breast cancer
  12. LACTATED RINGERS SOLUTION [Concomitant]
     Active Substance: CALCIUM CHLORIDE\POTASSIUM CHLORIDE\SODIUM CHLORIDE\SODIUM LACTATE
     Indication: Product used for unknown indication
     Dosage: 60 CC, PER HOUR
     Route: 065
  13. DIPYRONE [Concomitant]
     Active Substance: DIPYRONE
     Indication: Product used for unknown indication
     Dosage: 1 G
     Route: 042
  14. Hyoscine bromide [Concomitant]
     Indication: Product used for unknown indication
     Dosage: 20 MG
     Route: 042

REACTIONS (30)
  - Respiratory tract infection [Unknown]
  - Asthenia [Not Recovered/Not Resolved]
  - Decreased appetite [Not Recovered/Not Resolved]
  - Cholelithiasis [Unknown]
  - Vomiting [Unknown]
  - Abdominal pain upper [Not Recovered/Not Resolved]
  - Biliary colic [Unknown]
  - Pallor [Unknown]
  - Palpitations [Unknown]
  - Blood pressure increased [Unknown]
  - Mean arterial pressure increased [Unknown]
  - Heart rate increased [Unknown]
  - Oxygen saturation decreased [Unknown]
  - Angina pectoris [Unknown]
  - Chest pain [Unknown]
  - Troponin abnormal [Unknown]
  - Blood calcium abnormal [Unknown]
  - Hepatic lesion [Unknown]
  - Concomitant disease progression [Unknown]
  - Breast cancer recurrent [Not Recovered/Not Resolved]
  - Breast cancer metastatic [Unknown]
  - Malignant neoplasm progression [Unknown]
  - Fatigue [Not Recovered/Not Resolved]
  - Weight decreased [Not Recovered/Not Resolved]
  - Neutropenia [Unknown]
  - Electrocardiogram T wave peaked [Unknown]
  - Inguinal hernia [Unknown]
  - Osteoarthritis [Unknown]
  - Body height decreased [Unknown]
  - Product supply issue [Unknown]

NARRATIVE: CASE EVENT DATE: 20240624
